FAERS Safety Report 24808444 (Version 1)
Quarter: 2025Q1

REPORT INFORMATION
  Report Type: Spontaneous
  Country: US (occurrence: US)
  Receive Date: 20250106
  Receipt Date: 20250106
  Transmission Date: 20250409
  Serious: No
  Sender: ALKEM
  Company Number: US-ALKEM LABORATORIES LIMITED-US-ALKEM-2024-21126

PATIENT
  Age: 66 Year
  Sex: Male

DRUGS (2)
  1. TACROLIMUS [Suspect]
     Active Substance: TACROLIMUS
     Indication: Vitiligo
     Dosage: UNK, BID, (OINTMENT)
     Route: 065
  2. PIMECROLIMUS [Suspect]
     Active Substance: PIMECROLIMUS
     Indication: Vitiligo
     Dosage: UNK, BID, (CREAM)
     Route: 065

REACTIONS (1)
  - Therapy non-responder [Unknown]
